FAERS Safety Report 6993716-4 (Version None)
Quarter: 2010Q3

REPORT INFORMATION
  Report Type: 
  Country: None (occurrence: None)
  Receive Date: 20100917
  Receipt Date: 20100524
  Transmission Date: 20110219
  Serious: Yes (Hospitalization)
  Sender: FDA-Public Use
  Company Number: US-ASTRAZENECA-2010SE23566

PATIENT
  Age: 52 Year
  Sex: Male
  Weight: 117.9 kg

DRUGS (5)
  1. SEROQUEL [Suspect]
     Indication: BIPOLAR DISORDER
     Route: 048
  2. SEROQUEL [Suspect]
     Route: 048
     Dates: end: 20040101
  3. SEROQUEL [Suspect]
     Route: 048
     Dates: start: 20100101
  4. LISINOPRIL [Concomitant]
     Indication: BLOOD PRESSURE
  5. CLONAZEPAM [Concomitant]

REACTIONS (7)
  - APATHY [None]
  - DRUG DOSE OMISSION [None]
  - HYPERTENSION [None]
  - INCORRECT DOSE ADMINISTERED [None]
  - INSOMNIA [None]
  - PAIN IN EXTREMITY [None]
  - PSYCHOTIC DISORDER [None]
